FAERS Safety Report 12839451 (Version 1)
Quarter: 2016Q4

REPORT INFORMATION
  Report Type: Spontaneous
  Country: US (occurrence: US)
  Receive Date: 20161011
  Receipt Date: 20161011
  Transmission Date: 20170207
  Serious: Yes (Life-Threatening, Hospitalization, Disabling)
  Sender: FDA-Public Use
  Company Number: None

PATIENT
  Age: 32 Year
  Sex: Female

DRUGS (2)
  1. MEGESTROL 20MG CIGNA [Suspect]
     Active Substance: MEGESTROL
     Indication: UTERINE LEIOMYOMA
     Route: 048
  2. MEGESTROL 20MG CIGNA [Suspect]
     Active Substance: MEGESTROL
     Indication: MENORRHAGIA
     Route: 048

REACTIONS (1)
  - Cerebrovascular accident [None]

NARRATIVE: CASE EVENT DATE: 20160929
